FAERS Safety Report 15416601 (Version 1)
Quarter: 2018Q3

REPORT INFORMATION
  Report Type: Spontaneous
  Country: AU (occurrence: AU)
  Receive Date: 20180924
  Receipt Date: 20180924
  Transmission Date: 20181010
  Serious: Yes (Death, Hospitalization)
  Sender: FDA-Public Use
  Company Number: AU-TEVA-2018-AU-957135

PATIENT
  Age: 55 Year
  Sex: Female

DRUGS (2)
  1. PACLITAXEL. [Suspect]
     Active Substance: PACLITAXEL
     Indication: OVARIAN CANCER STAGE III
     Dosage: THREE CYCLES WEEKLY
     Route: 065
  2. CARBOPLATIN. [Suspect]
     Active Substance: CARBOPLATIN
     Indication: OVARIAN CANCER STAGE III
     Dosage: 385 MG/BODY TO ACHIEVE AUC OF 5 USING THE CALVERT FORMULA
     Route: 065

REACTIONS (7)
  - Rectal perforation [Fatal]
  - Respiratory disorder [Fatal]
  - Escherichia infection [Fatal]
  - Septic shock [Fatal]
  - Neutropenic colitis [Fatal]
  - Condition aggravated [Fatal]
  - Febrile neutropenia [Fatal]
